FAERS Safety Report 15201174 (Version 3)
Quarter: 2018Q4

REPORT INFORMATION
  Report Type: Spontaneous
  Country: US (occurrence: US)
  Receive Date: 20180726
  Receipt Date: 20181201
  Transmission Date: 20190204
  Serious: No
  Sender: FDA-Public Use
  Company Number: US-PFIZER INC-2018301512

PATIENT
  Sex: Female

DRUGS (4)
  1. DOCETAXEL. [Suspect]
     Active Substance: DOCETAXEL
     Dosage: UNK (EVERY 2 WEEKS)
     Dates: start: 20110214, end: 201106
  2. TAXOTERE [Suspect]
     Active Substance: DOCETAXEL
     Dosage: UNK (EVERY 2 WEEKS)
     Dates: start: 20110214, end: 201106
  3. DOCETAXEL. [Suspect]
     Active Substance: DOCETAXEL
     Indication: BREAST CANCER
     Dosage: UNK
     Dates: start: 20110215, end: 20110531
  4. TAXOTERE [Suspect]
     Active Substance: DOCETAXEL
     Indication: BREAST CANCER
     Dosage: UNK
     Dates: start: 20110215, end: 20110531

REACTIONS (5)
  - Hair texture abnormal [Unknown]
  - Madarosis [Unknown]
  - Alopecia [Unknown]
  - Hair disorder [Unknown]
  - Hair colour changes [Unknown]
